FAERS Safety Report 25171333 (Version 4)
Quarter: 2025Q3

REPORT INFORMATION
  Report Type: Spontaneous
  Country: JP (occurrence: JP)
  Receive Date: 20250408
  Receipt Date: 20250924
  Transmission Date: 20251020
  Serious: Yes (Death, Hospitalization, Other)
  Sender: BRISTOL-MYERS SQUIBB COMPANY
  Company Number: JP-ONO-2025JP005977

PATIENT
  Age: 74 Year
  Sex: Male

DRUGS (1)
  1. OPDIVO [Suspect]
     Active Substance: NIVOLUMAB
     Indication: Head and neck cancer
     Dates: start: 20240208, end: 20250319

REACTIONS (3)
  - Myelodysplastic syndrome [Fatal]
  - Ventricular arrhythmia [Fatal]
  - Pneumonia [Unknown]

NARRATIVE: CASE EVENT DATE: 20250319
